FAERS Safety Report 9311516 (Version 2)
Quarter: 2013Q2

REPORT INFORMATION
  Report Type: Spontaneous
  Country: US (occurrence: US)
  Receive Date: 20130528
  Receipt Date: 20130529
  Transmission Date: 20140414
  Serious: Yes (Other)
  Sender: FDA-Public Use
  Company Number: US-BAXTER-2013BAX018985

PATIENT
  Age: 69 Year
  Sex: Male

DRUGS (8)
  1. DIANEAL LOW CALCIUM [Suspect]
     Indication: PERITONEAL DIALYSIS
     Route: 033
     Dates: start: 201104
  2. DIANEAL LOW CALCIUM [Suspect]
     Route: 033
  3. DIANEAL LOW CALCIUM [Suspect]
     Indication: PERITONEAL DIALYSIS
     Route: 033
     Dates: start: 201104
  4. DIANEAL LOW CALCIUM [Suspect]
     Route: 033
  5. DIANEAL LOW CALCIUM (ULTRABAG) [Suspect]
     Indication: PERITONEAL DIALYSIS
     Route: 033
     Dates: start: 201104
  6. DIANEAL LOW CALCIUM (ULTRABAG) [Suspect]
     Route: 033
  7. DIANEAL LOW CALCIUM (ULTRABAG) [Suspect]
     Indication: PERITONEAL DIALYSIS
     Route: 033
     Dates: start: 201104
  8. DIANEAL LOW CALCIUM (ULTRABAG) [Suspect]
     Route: 033

REACTIONS (4)
  - Back pain [Recovered/Resolved]
  - Oedema peripheral [Recovered/Resolved]
  - Abdominal pain [Recovered/Resolved]
  - Diarrhoea [Recovered/Resolved]
